FAERS Safety Report 5732442-6 (Version None)
Quarter: 2008Q2

REPORT INFORMATION
  Report Type: 
  Country: None (occurrence: None)
  Receive Date: 20080508
  Receipt Date: 20080424
  Transmission Date: 20081010
  Serious: Yes (Hospitalization)
  Sender: FDA-Public Use
  Company Number: TR-ELI_LILLY_AND_COMPANY-TR200804006333

PATIENT
  Age: 58 Year
  Sex: Male

DRUGS (4)
  1. PROZAC [Suspect]
     Dosage: 20 MG, DAILY (1/D)
     Route: 065
  2. METOPROLOL TARTRATE [Concomitant]
     Dosage: 50 MG, 2/D
  3. ATORVASTATIN CALCIUM [Concomitant]
     Dosage: 20 MG, DAILY (1/D)
     Route: 065
  4. INSULIN [Concomitant]
     Dosage: UNK, UNKNOWN
     Route: 065

REACTIONS (3)
  - INAPPROPRIATE ANTIDIURETIC HORMONE SECRETION [None]
  - POLYDIPSIA PSYCHOGENIC [None]
  - PYELONEPHRITIS ACUTE [None]
